FAERS Safety Report 4481631-X (Version None)
Quarter: 2004Q4

REPORT INFORMATION
  Report Type: 
  Country: None (occurrence: None)
  Receive Date: 20041021
  Receipt Date: 20041012
  Transmission Date: 20050328
  Serious: Yes (Life-Threatening, Hospitalization)
  Sender: FDA-Public Use
  Company Number: CY-MERCK-0410USA01877

PATIENT
  Age: 56 Year
  Sex: Male
  Weight: 85 kg

DRUGS (6)
  1. ZOCOR [Suspect]
     Indication: BLOOD CHOLESTEROL INCREASED
     Route: 048
     Dates: start: 20011218, end: 20040809
  2. ZOCOR [Suspect]
     Indication: DIABETES MELLITUS
     Route: 048
     Dates: start: 20011218, end: 20040809
  3. GLUCOPHAGE [Concomitant]
     Indication: DIABETES MELLITUS NON-INSULIN-DEPENDENT
     Route: 065
     Dates: start: 20010101, end: 20040809
  4. COZAAR [Concomitant]
     Indication: DIABETES MELLITUS
     Route: 065
     Dates: start: 20020101, end: 20040809
  5. ASPIRIN [Concomitant]
     Indication: CORONARY ARTERY DISEASE
     Route: 065
     Dates: start: 20000101, end: 20040809
  6. ZYLORIC [Concomitant]
     Indication: BLOOD URIC ACID INCREASED
     Route: 065
     Dates: start: 19980101, end: 20040809

REACTIONS (1)
  - THROMBOTIC THROMBOCYTOPENIC PURPURA [None]
